APPROVED DRUG PRODUCT: TROXYCA ER
Active Ingredient: NALTREXONE HYDROCHLORIDE; OXYCODONE HYDROCHLORIDE
Strength: 7.2MG;60MG
Dosage Form/Route: CAPSULE, EXTENDED RELEASE;ORAL
Application: N207621 | Product #005
Applicant: PFIZER INC
Approved: Aug 19, 2016 | RLD: No | RS: No | Type: DISCN

PATENTS:
Patent 7815934 | Expires: Dec 12, 2027